FAERS Safety Report 7971058-8 (Version None)
Quarter: 2011Q4

REPORT INFORMATION
  Report Type: 
  Country: None (occurrence: None)
  Receive Date: 20111212
  Receipt Date: 20111212
  Transmission Date: 20120403
  Serious: Yes (Death)
  Sender: FDA-Public Use
  Company Number: None

PATIENT
  Age: 46 Year
  Sex: Male
  Weight: 63 kg

DRUGS (2)
  1. LAMICTAL [Suspect]
     Indication: EPILEPSY
     Dosage: 1X 25 MG TABLET
     Route: 048
     Dates: start: 20111007, end: 20111021
  2. LAMICTAL [Concomitant]
     Dosage: 2X 25 MG
     Dates: start: 20111022, end: 20111028

REACTIONS (4)
  - MULTI-ORGAN DISORDER [None]
  - STEVENS-JOHNSON SYNDROME [None]
  - DRUG HYPERSENSITIVITY [None]
  - SEPSIS [None]
